FAERS Safety Report 10231571 (Version 1)
Quarter: 2014Q2

REPORT INFORMATION
  Report Type: Spontaneous
  Country: US (occurrence: US)
  Receive Date: 20140611
  Receipt Date: 20140611
  Transmission Date: 20141212
  Serious: Yes (Other)
  Sender: FDA-Public Use
  Company Number: US-ABBVIE-14P-163-1243952-00

PATIENT
  Age: 48 Year
  Sex: Female
  Weight: 54.48 kg

DRUGS (4)
  1. LUPANETA PACK [Suspect]
     Indication: ENDOMETRIOSIS
     Dates: start: 20140515
  2. LUPANETA PACK [Suspect]
     Indication: ENDOMETRIOSIS
     Dates: start: 20140515
  3. LUPRON DEPOT [Suspect]
     Indication: PRODUCT USED FOR UNKNOWN INDICATION
     Dates: start: 2010
  4. CALCIUM + VITAMIN D [Concomitant]
     Indication: PRODUCT USED FOR UNKNOWN INDICATION
     Dates: start: 2010

REACTIONS (12)
  - Neuroborreliosis [Not Recovered/Not Resolved]
  - Convulsion [Unknown]
  - Paralysis [Not Recovered/Not Resolved]
  - Central nervous system lesion [Not Recovered/Not Resolved]
  - Meningitis [Not Recovered/Not Resolved]
  - Ovarian neoplasm [Recovered/Resolved]
  - Cervix neoplasm [Recovered/Resolved]
  - Vaginal haemorrhage [Not Recovered/Not Resolved]
  - Anaemia [Not Recovered/Not Resolved]
  - Hot flush [Not Recovered/Not Resolved]
  - Chest pain [Recovering/Resolving]
  - Upper respiratory tract infection [Recovering/Resolving]
